FAERS Safety Report 4834778-X (Version None)
Quarter: 2005Q4

REPORT INFORMATION
  Report Type: 
  Country: None (occurrence: None)
  Receive Date: 20051122
  Receipt Date: 20051025
  Transmission Date: 20060501
  Serious: No
  Sender: FDA-Public Use
  Company Number: US-BRISTOL-MYERS SQUIBB COMPANY-13157193

PATIENT
  Age: 52 Year
  Sex: Female

DRUGS (2)
  1. PRAVACHOL [Suspect]
     Route: 048
     Dates: start: 20030101
  2. PLAVIX [Concomitant]

REACTIONS (1)
  - HEPATIC ENZYME INCREASED [None]
